FAERS Safety Report 7716975-9 (Version None)
Quarter: 2011Q3

REPORT INFORMATION
  Report Type: 
  Country: None (occurrence: None)
  Receive Date: 20110829
  Receipt Date: 20110824
  Transmission Date: 20111222
  Serious: Yes (Death, Other)
  Sender: FDA-Public Use
  Company Number: US-ASTRAZENECA-2011SE51116

PATIENT
  Age: 83 Year
  Sex: Male

DRUGS (1)
  1. SYMBICORT [Suspect]
     Route: 048

REACTIONS (3)
  - DEATH [None]
  - DISEASE COMPLICATION [None]
  - CEREBROVASCULAR ACCIDENT [None]
